FAERS Safety Report 8448445-7 (Version None)
Quarter: 2012Q2

REPORT INFORMATION
  Report Type: 
  Country: None (occurrence: None)
  Receive Date: 20120619
  Receipt Date: 20120615
  Transmission Date: 20120825
  Serious: Yes (Hospitalization, Other)
  Sender: FDA-Public Use
  Company Number: PHEH2012US012006

PATIENT
  Sex: Female

DRUGS (5)
  1. OXYBUTON [Concomitant]
     Dosage: UNK
     Route: 048
  2. PROVIGIL [Concomitant]
  3. PROZAC [Concomitant]
     Indication: DEPRESSION
     Dosage: 20 MG, BID
     Route: 048
  4. GILENYA [Suspect]
     Indication: MULTIPLE SCLEROSIS
     Dosage: 0.5 MG, DAILY
     Route: 048
  5. XANAX [Concomitant]
     Indication: ANXIETY
     Dosage: 1 MG, TID
     Route: 048

REACTIONS (7)
  - TOURETTE'S DISORDER [None]
  - MULTIPLE SCLEROSIS RELAPSE [None]
  - URINARY TRACT INFECTION [None]
  - TIC [None]
  - CHOLELITHIASIS [None]
  - DISTURBANCE IN ATTENTION [None]
  - HEPATIC ENZYME INCREASED [None]
